FAERS Safety Report 26117147 (Version 2)
Quarter: 2025Q4

REPORT INFORMATION
  Report Type: Spontaneous
  Country: US (occurrence: US)
  Receive Date: 20251203
  Receipt Date: 20251210
  Transmission Date: 20260118
  Serious: Yes (Hospitalization, Other)
  Sender: PFIZER
  Company Number: US-PFIZER INC-PV202500138698

PATIENT
  Age: 31 Year
  Sex: Male

DRUGS (2)
  1. FENTANYL CITRATE [Suspect]
     Active Substance: FENTANYL CITRATE
     Dosage: UNK
     Route: 042
  2. XYLAZINE [Suspect]
     Active Substance: XYLAZINE
     Dosage: UNK
     Route: 042

REACTIONS (2)
  - Wound [Unknown]
  - Drug use disorder [Unknown]
